FAERS Safety Report 5892129-6 (Version None)
Quarter: 2008Q3

REPORT INFORMATION
  Report Type: 
  Country: None (occurrence: None)
  Receive Date: 20080922
  Receipt Date: 20080910
  Transmission Date: 20090109
  Serious: Yes (Other)
  Sender: FDA-Public Use
  Company Number: JP-PFIZER INC-2008078212

PATIENT

DRUGS (2)
  1. VFEND [Suspect]
  2. MYSLEE [Suspect]
     Route: 048

REACTIONS (2)
  - MENTAL DISORDER [None]
  - SUICIDE ATTEMPT [None]
